FAERS Safety Report 8763829 (Version 1)
Quarter: 2012Q4

REPORT INFORMATION
  Report Type: 
  Country: US (occurrence: US)
  Receive Date: 20120831
  Receipt Date: 20120831
  Transmission Date: 20130627
  Serious: Yes (Other)
  Sender: FDA-Public Use
  Company Number: US-SHIRE-ALL1-2012-04103

PATIENT
  Sex: Male

DRUGS (1)
  1. PENTASA [Suspect]
     Indication: PRODUCT USED FOR UNKNOWN INDICATION
     Dosage: UNK UNK, Unknown
     Route: 048

REACTIONS (2)
  - Amnesia [Unknown]
  - Off label use [Unknown]
